FAERS Safety Report 7460717-1 (Version None)
Quarter: 2011Q2

REPORT INFORMATION
  Report Type: 
  Country: None (occurrence: None)
  Receive Date: 20110505
  Receipt Date: 20110502
  Transmission Date: 20111010
  Serious: Yes (Hospitalization)
  Sender: FDA-Public Use
  Company Number: CA-US-EMD SERONO, INC.-7028541

PATIENT
  Sex: Female

DRUGS (5)
  1. CALCIFIT [Concomitant]
  2. ESTRAGEL [Concomitant]
  3. ADVIL LIQUI-GELS [Concomitant]
     Indication: PROPHYLAXIS
     Dosage: PRIOR TO REBIF INJECTIONS
  4. REBIF [Suspect]
     Dates: start: 20110124, end: 20110216
  5. REBIF [Suspect]
     Indication: RELAPSING-REMITTING MULTIPLE SCLEROSIS
     Dates: start: 20101101, end: 20110101

REACTIONS (7)
  - PYREXIA [None]
  - MALAISE [None]
  - INSOMNIA [None]
  - MULTIPLE SCLEROSIS RELAPSE [None]
  - BILE DUCT STONE [None]
  - TERMINAL INSOMNIA [None]
  - INFLUENZA LIKE ILLNESS [None]
